FAERS Safety Report 8902103 (Version 1)
Quarter: 2012Q4

REPORT INFORMATION
  Report Type: 
  Country: KR (occurrence: KR)
  Receive Date: 20121112
  Receipt Date: 20121112
  Transmission Date: 20130627
  Serious: Yes (Other)
  Sender: FDA-Public Use
  Company Number: KR-SANOFI-AVENTIS-2012SA080985

PATIENT
  Age: 36 Year
  Sex: Male

DRUGS (1)
  1. PETHIDINE HYDROCHLORIDE [Suspect]
     Indication: PROCEDURAL PAIN
     Route: 030

REACTIONS (5)
  - Embolia cutis medicamentosa [Recovered/Resolved]
  - Pain [Recovered/Resolved]
  - Erythema [Recovered/Resolved]
  - Necrosis [Recovered/Resolved]
  - Purpura [Recovered/Resolved]
